FAERS Safety Report 14038968 (Version 1)
Quarter: 2017Q4

REPORT INFORMATION
  Report Type: Spontaneous
  Country: AU (occurrence: AU)
  Receive Date: 20171004
  Receipt Date: 20171004
  Transmission Date: 20180321
  Serious: Yes (Death, Life-Threatening)
  Sender: FDA-Public Use
  Company Number: AU-SUN PHARMACEUTICAL INDUSTRIES LTD-2017R1-151435

PATIENT
  Age: 50 Year
  Sex: Female

DRUGS (1)
  1. PREDNISONE. [Suspect]
     Active Substance: PREDNISONE
     Indication: AMYLOIDOSIS
     Dosage: LOW-DOSE
     Route: 065

REACTIONS (3)
  - Infarction [Unknown]
  - Splenic infarction [Unknown]
  - Mucormycosis [Fatal]
